FAERS Safety Report 7251638-8 (Version None)
Quarter: 2011Q1

REPORT INFORMATION
  Report Type: 
  Country: None (occurrence: None)
  Receive Date: 20110128
  Receipt Date: 20110121
  Transmission Date: 20110831
  Serious: Yes (Other)
  Sender: FDA-Public Use
  Company Number: DE-CEPHALON-2011000212

PATIENT
  Sex: Male

DRUGS (1)
  1. TRISENOX [Suspect]

REACTIONS (1)
  - EXTRAVASATION [None]
